FAERS Safety Report 8829277 (Version 1)
Quarter: 2012Q4

REPORT INFORMATION
  Report Type: Spontaneous
  Country: US (occurrence: None)
  Receive Date: 20121005
  Receipt Date: 20121005
  Transmission Date: 20130627
  Serious: Yes (Life-Threatening, Disabling)
  Sender: FDA-Public Use
  Company Number: None

PATIENT

DRUGS (2)
  1. RISPERDAL [Suspect]
     Dates: start: 1994
  2. ZOLOFT [Suspect]

REACTIONS (2)
  - Suicide attempt [None]
  - Feeling abnormal [None]
